FAERS Safety Report 7808455-7 (Version None)
Quarter: 2011Q4

REPORT INFORMATION
  Report Type: 
  Country: None (occurrence: None)
  Receive Date: 20111011
  Receipt Date: 20111011
  Transmission Date: 20120403
  Serious: Yes (Hospitalization)
  Sender: FDA-Public Use
  Company Number: None

PATIENT
  Age: 32 Year
  Sex: Female
  Weight: 80.2867 kg

DRUGS (9)
  1. KEPPRA [Concomitant]
  2. MELOXICAM [Concomitant]
  3. PROMETHAZINE [Concomitant]
  4. TEMODAR [Concomitant]
  5. FOLIC ACID [Concomitant]
  6. ZOFRAN [Concomitant]
  7. LEVULAN [Suspect]
     Indication: MIXED OLIGO-ASTROCYTOMA
     Dosage: 840MG, QD, ORAL
     Route: 048
     Dates: start: 20110531
  8. ATIVAN [Concomitant]
  9. MEPRON [Concomitant]

REACTIONS (1)
  - WOUND INFECTION [None]
